FAERS Safety Report 19652699 (Version 2)
Quarter: 2022Q4

REPORT INFORMATION
  Report Type: Other
  Country: NL (occurrence: NL)
  Receive Date: 20210803
  Receipt Date: 20221006
  Transmission Date: 20230112
  Serious: Yes (Death, Other)
  Sender: FDA-Public Use
  Company Number: NL-TOLMAR, INC.-21NL027867

PATIENT
  Age: 60 Year
  Sex: Male

DRUGS (5)
  1. ELIGARD [Suspect]
     Active Substance: LEUPROLIDE ACETATE
     Indication: Prostate cancer metastatic
     Dosage: 45 MILLIGRAM, Q 6 MONTH
     Route: 058
     Dates: start: 20180613
  2. ELIGARD [Suspect]
     Active Substance: LEUPROLIDE ACETATE
     Dosage: 45 MILLIGRAM, Q 6 MONTH
     Route: 058
     Dates: start: 20201207
  3. ELIGARD [Suspect]
     Active Substance: LEUPROLIDE ACETATE
     Dosage: 45 MILLIGRAM, Q 6 MONTH
     Route: 058
     Dates: start: 20210607
  4. ELIGARD [Suspect]
     Active Substance: LEUPROLIDE ACETATE
     Dosage: 45 MILLIGRAM, Q 6 MONTH
     Route: 058
     Dates: start: 20211208
  5. ELIGARD [Suspect]
     Active Substance: LEUPROLIDE ACETATE
     Dosage: 45 MILLIGRAM, Q 6 MONTH
     Route: 058
     Dates: start: 20220613

REACTIONS (4)
  - Death [Fatal]
  - Prostatic specific antigen increased [Not Recovered/Not Resolved]
  - Metastases to bone [Unknown]
  - Drug ineffective [Unknown]

NARRATIVE: CASE EVENT DATE: 20210525
